FAERS Safety Report 18946545 (Version 1)
Quarter: 2021Q1

REPORT INFORMATION
  Report Type: Report from Study
  Country: CN (occurrence: CN)
  Receive Date: 20210226
  Receipt Date: 20210226
  Transmission Date: 20210420
  Serious: Yes (Life-Threatening, Other)
  Sender: FDA-Public Use
  Company Number: CN-ASTRAZENECA-2021A085033

PATIENT
  Age: 48 Year
  Sex: Male

DRUGS (4)
  1. MONTELUKAST [Concomitant]
     Active Substance: MONTELUKAST SODIUM
     Route: 065
  2. OSIMERTINIB. [Suspect]
     Active Substance: OSIMERTINIB
     Indication: LUNG ADENOCARCINOMA
     Route: 048
     Dates: start: 20191028
  3. MOSAPRIDE [Concomitant]
     Active Substance: MOSAPRIDE
     Route: 065
  4. CALCIUM MALATE [Concomitant]
     Route: 065

REACTIONS (8)
  - Pulmonary embolism [Unknown]
  - Decreased appetite [Unknown]
  - Cough [Unknown]
  - Fatigue [Unknown]
  - Respiratory failure [Unknown]
  - Anaemia [Unknown]
  - Hypoproteinaemia [Unknown]
  - Lymphopenia [Unknown]
